FAERS Safety Report 12271956 (Version 2)
Quarter: 2016Q2

REPORT INFORMATION
  Report Type: Spontaneous
  Country: US (occurrence: US)
  Receive Date: 20160415
  Receipt Date: 20160617
  Transmission Date: 20160815
  Serious: Yes (Other)
  Sender: FDA-Public Use
  Company Number: US-BAYER-2016-071739

PATIENT
  Age: 57 Year
  Sex: Female

DRUGS (2)
  1. GADAVIST [Suspect]
     Active Substance: GADOBUTROL
     Indication: NUCLEAR MAGNETIC RESONANCE IMAGING SPINAL
     Dosage: 8 ML, ONCE
     Dates: start: 20160413, end: 20160413
  2. GADAVIST [Suspect]
     Active Substance: GADOBUTROL
     Indication: SPINAL CORD NEOPLASM

REACTIONS (16)
  - Facial pain [None]
  - Pruritus [Recovering/Resolving]
  - Slow response to stimuli [None]
  - Feeling abnormal [None]
  - Chills [None]
  - Flushing [None]
  - Hyperhidrosis [None]
  - Somnolence [None]
  - Syncope [None]
  - Erythema [Recovering/Resolving]
  - Generalised erythema [Recovering/Resolving]
  - Loss of consciousness [None]
  - Radial pulse decreased [None]
  - Muscle tightness [None]
  - Nausea [None]
  - Malaise [None]

NARRATIVE: CASE EVENT DATE: 20160413
